FAERS Safety Report 10255107 (Version 1)
Quarter: 2014Q2

REPORT INFORMATION
  Report Type: Spontaneous
  Country: FR (occurrence: FR)
  Receive Date: 20140624
  Receipt Date: 20140624
  Transmission Date: 20141212
  Serious: Yes (Hospitalization)
  Sender: FDA-Public Use
  Company Number: FR-TEVA-489799ISR

PATIENT
  Age: 27 Year
  Sex: Female

DRUGS (1)
  1. COPAXONE [Suspect]
     Indication: MULTIPLE SCLEROSIS
     Dosage: WITH THE AUTOJECT AT DEPTH 6 TO 8 MM
     Route: 058
     Dates: start: 20131003

REACTIONS (5)
  - Multiple sclerosis relapse [Unknown]
  - Sight disability [Unknown]
  - Sensory loss [Unknown]
  - Injection site swelling [Recovered/Resolved]
  - Injection site erythema [Recovered/Resolved]
